FAERS Safety Report 18124054 (Version 2)
Quarter: 2020Q4

REPORT INFORMATION
  Report Type: Spontaneous
  Country: ES (occurrence: ES)
  Receive Date: 20200807
  Receipt Date: 20201031
  Transmission Date: 20210113
  Serious: Yes (Hospitalization, Other)
  Sender: FDA-Public Use
  Company Number: ES-SCIEGEN-2020SCILIT00167

PATIENT
  Age: 60 Year
  Sex: Female
  Weight: 57.7 kg

DRUGS (3)
  1. HYDROCHLOROTHIAZIDE CAPSULES USP, 12.5 MG [Suspect]
     Active Substance: HYDROCHLOROTHIAZIDE
     Indication: HYPERTENSION
     Route: 065
  2. GLUCAGON. [Interacting]
     Active Substance: GLUCAGON
     Indication: HYPERGLYCAEMIA
     Dosage: UNKNOWN
     Route: 042
  3. INSULIN [Interacting]
     Active Substance: INSULIN NOS
     Indication: HYPERGLYCAEMIA
     Dosage: UNKNOWN
     Route: 042

REACTIONS (4)
  - Hyperglycaemia [Recovered/Resolved]
  - Diabetic ketoacidosis [Recovered/Resolved]
  - Fulminant type 1 diabetes mellitus [Recovered/Resolved]
  - Renal failure [Recovered/Resolved]
